FAERS Safety Report 8472126-7 (Version None)
Quarter: 2012Q2

REPORT INFORMATION
  Report Type: 
  Country: None (occurrence: None)
  Receive Date: 20120627
  Receipt Date: 20120618
  Transmission Date: 20120825
  Serious: Yes (Hospitalization)
  Sender: FDA-Public Use
  Company Number: FR-FRI-1000036608

PATIENT
  Sex: Female

DRUGS (5)
  1. KALEORID LP [Concomitant]
     Dosage: 1000 MG
     Route: 048
  2. COUMADIN [Concomitant]
     Dosage: 4 MG
     Route: 048
  3. NEBIVOLOL [Suspect]
     Dosage: 0.25 MG
     Route: 048
  4. FUROSEMIDE [Suspect]
     Dosage: 40 MG
     Route: 048
     Dates: end: 20120410
  5. MICARDIS [Suspect]
     Route: 048
     Dates: end: 20120410

REACTIONS (2)
  - ORTHOSTATIC HYPOTENSION [None]
  - RENAL FAILURE ACUTE [None]
